FAERS Safety Report 5926612-1 (Version None)
Quarter: 2008Q4

REPORT INFORMATION
  Report Type: 
  Country: None (occurrence: None)
  Receive Date: 20081022
  Receipt Date: 20081017
  Transmission Date: 20090506
  Serious: Yes (Other)
  Sender: FDA-Public Use
  Company Number: A0753133A

PATIENT
  Age: 46 Year
  Sex: Male

DRUGS (2)
  1. AROPAX [Suspect]
     Indication: ANXIETY
     Dosage: 20MG PER DAY
     Route: 048
     Dates: start: 20020801, end: 20080201
  2. NO CONCURRENT MEDICATION [Concomitant]

REACTIONS (2)
  - INFERTILITY [None]
  - SPERMATOZOA PROGRESSIVE MOTILITY ABNORMAL [None]
